FAERS Safety Report 8491356 (Version 4)
Quarter: 2014Q1

REPORT INFORMATION
  Report Type: Report from Study
  Country: FR (occurrence: FR)
  Receive Date: 20120403
  Receipt Date: 20140204
  Transmission Date: 20141002
  Serious: Yes (Hospitalization)
  Sender: FDA-Public Use
  Company Number: PHHO2012FR005127

PATIENT
  Sex: 0

DRUGS (17)
  1. IMATINIB [Suspect]
     Indication: ACUTE LYMPHOCYTIC LEUKAEMIA
     Dosage: UNK
     Route: 048
     Dates: start: 20120130
  2. IMATINIB [Suspect]
     Dosage: 300 MG/DAY
     Route: 048
     Dates: start: 20120205, end: 20120218
  3. IMATINIB [Suspect]
     Dosage: 300 MG, PER DAY
     Route: 048
     Dates: start: 20120716, end: 20120802
  4. IMATINIB [Suspect]
     Dosage: 300 MG, QD
     Route: 048
     Dates: start: 20120315, end: 20130415
  5. VINDESINE [Suspect]
     Indication: ACUTE LYMPHOCYTIC LEUKAEMIA
     Dosage: 2.7 MG, J
     Route: 042
     Dates: start: 20120130, end: 20120204
  6. DEXAMETHASONE [Suspect]
     Indication: ACUTE LYMPHOCYTIC LEUKAEMIA
     Dosage: 18 MG, J
     Route: 042
     Dates: start: 20120130, end: 20120203
  7. DEXAMETHASONE [Suspect]
     Dosage: 3 MG, TID
     Route: 042
     Dates: start: 20120315, end: 20120405
  8. DEXAMETHASONE [Suspect]
     Dosage: 10 MG, QD
     Route: 042
     Dates: start: 20120625, end: 20120716
  9. DAUNORUBICIN [Suspect]
     Indication: ACUTE LYMPHOCYTIC LEUKAEMIA
     Dosage: 27 MG, UNK
     Route: 042
     Dates: start: 20120203, end: 20120203
  10. METHOTREXATE [Suspect]
     Indication: ACUTE LYMPHOCYTIC LEUKAEMIA
     Dosage: 4.6 MG, UNK
     Route: 042
     Dates: start: 20120130
  11. IFOSFAMIDE [Suspect]
     Indication: ACUTE LYMPHOCYTIC LEUKAEMIA
     Dosage: 1440 MG, UNK
     Route: 042
     Dates: start: 20120131, end: 20120202
  12. L-ASPARAGINASE [Suspect]
     Indication: ACUTE LYMPHOCYTIC LEUKAEMIA
     Dosage: 2400 IU, UNK
     Dates: start: 20120203, end: 20120203
  13. L-ASPARAGINASE [Suspect]
     Dosage: 25 MG, 3 DOSES
     Dates: start: 20120719, end: 20120724
  14. VINCRISTINE [Concomitant]
     Dosage: 1.3 MG, FOR DOSES
     Route: 042
     Dates: start: 20120322, end: 20120413
  15. VINCRISTINE [Concomitant]
     Dosage: 1.5 MG, Q4H
     Route: 042
     Dates: start: 20120702, end: 20120725
  16. ADRIAMYCIN [Concomitant]
     Dosage: 22.5 MG, FOUR DOSES
     Route: 042
     Dates: start: 20120322, end: 20120413
  17. ADRIAMYCIN [Concomitant]
     Dosage: 25 MG, Q3H
     Route: 042
     Dates: start: 20120702, end: 20120725

REACTIONS (4)
  - Bronchopneumopathy [Recovered/Resolved]
  - Pancreatitis [Recovered/Resolved]
  - Abdominal pain [Recovered/Resolved]
  - Mucosal inflammation [Recovered/Resolved]
